FAERS Safety Report 5571889-8 (Version None)
Quarter: 2007Q4

REPORT INFORMATION
  Report Type: 
  Country: None (occurrence: None)
  Receive Date: 20071219
  Receipt Date: 20071205
  Transmission Date: 20080405
  Serious: Yes (Hospitalization)
  Sender: FDA-Public Use
  Company Number: AZAUS200700427

PATIENT
  Age: 67 Year
  Sex: Male
  Weight: 83 kg

DRUGS (19)
  1. VIDAZA [Suspect]
     Indication: MYELODYSPLASTIC SYNDROME
     Dosage: (200 MG, DAILY X 5 DAYS), INTRAVENOUS
     Route: 042
     Dates: start: 20071008, end: 20071012
  2. TERAZOSIN HCL [Concomitant]
  3. OSTEO BIFLEX [Concomitant]
  4. ASPIRIN [Concomitant]
  5. FOLIC ACID [Concomitant]
  6. GLYBURIDE [Concomitant]
  7. MAGNESIUM (MAGNESIUM) [Concomitant]
  8. ZETIA [Concomitant]
  9. VITAMIN B12 [Concomitant]
  10. ALLOPURINOL [Concomitant]
  11. VALTREX [Concomitant]
  12. MOXIFLOXACIN HCL [Concomitant]
  13. OXYCODONE HCL [Concomitant]
  14. MIRALAX [Concomitant]
  15. COLACE (DOCUSATE SODIUM) [Concomitant]
  16. ACYCLOVIR [Concomitant]
  17. MEROPENEM (MEROPENEM) [Concomitant]
  18. HYDROCHLOROTHIAZIDE [Concomitant]
  19. CALCIUM (CALCIUM) [Concomitant]

REACTIONS (4)
  - BACTERIAL INFECTION [None]
  - CULTURE POSITIVE [None]
  - FEBRILE NEUTROPENIA [None]
  - MUCORMYCOSIS [None]
